FAERS Safety Report 17308215 (Version 1)
Quarter: 2020Q1

REPORT INFORMATION
  Report Type: Spontaneous
  Country: DE (occurrence: DE)
  Receive Date: 20200123
  Receipt Date: 20200123
  Transmission Date: 20200409
  Serious: Yes (Other)
  Sender: FDA-Public Use
  Company Number: DE-ASTRAZENECA-2020SE07237

PATIENT
  Age: 47 Year
  Sex: Female

DRUGS (3)
  1. OSIMERTINIB. [Suspect]
     Active Substance: OSIMERTINIB
     Indication: LUNG ADENOCARCINOMA
     Route: 048
     Dates: start: 201905, end: 201908
  2. GILOTRIF [Suspect]
     Active Substance: AFATINIB
     Indication: LUNG ADENOCARCINOMA
     Route: 065
     Dates: start: 201805, end: 201905
  3. DENOSUMAB [Concomitant]
     Active Substance: DENOSUMAB
     Indication: PRODUCT USED FOR UNKNOWN INDICATION
     Dates: start: 201805

REACTIONS (6)
  - Pleural effusion [Unknown]
  - Malignant neoplasm progression [Unknown]
  - Non-small cell lung cancer [Unknown]
  - Pubis fracture [Unknown]
  - Pericardial effusion [Unknown]
  - Blood lactate dehydrogenase [Unknown]

NARRATIVE: CASE EVENT DATE: 201905
